FAERS Safety Report 5316485-2 (Version None)
Quarter: 2007Q2

REPORT INFORMATION
  Report Type: 
  Country: None (occurrence: None)
  Receive Date: 20070430
  Receipt Date: 20070301
  Transmission Date: 20071010
  Serious: Yes (Hospitalization)
  Sender: FDA-Public Use
  Company Number: CLOF-10434

PATIENT
  Age: 79 Year
  Sex: Male

DRUGS (6)
  1. EVOLTRA (CLOFARABINE) [Suspect]
     Indication: ACUTE MYELOID LEUKAEMIA
     Dosage: 35 MG QD IV
     Route: 042
     Dates: start: 20070108, end: 20070112
  2. MYLOTARG [Concomitant]
  3. DAUNORUBICIN HCL [Concomitant]
  4. MEROPENEM [Concomitant]
  5. TEICOPLANIN [Concomitant]
  6. ALLOPURINOL [Concomitant]

REACTIONS (2)
  - DERMATITIS EXFOLIATIVE [None]
  - NEUTROPENIA [None]
